FAERS Safety Report 5938490-5 (Version None)
Quarter: 2008Q4

REPORT INFORMATION
  Report Type: 
  Country: None (occurrence: None)
  Receive Date: 20081103
  Receipt Date: 20081029
  Transmission Date: 20090506
  Serious: Yes (Hospitalization)
  Sender: FDA-Public Use
  Company Number: JP-BRACCO-001286

PATIENT
  Age: 60 Year
  Sex: Male

DRUGS (2)
  1. IOPAMIDOL [Suspect]
     Indication: BILE DUCT CANCER
     Route: 065
     Dates: start: 20081017, end: 20081017
  2. IOPAMIDOL [Suspect]
     Indication: COMPUTERISED TOMOGRAM
     Route: 065
     Dates: start: 20081017, end: 20081017

REACTIONS (7)
  - ARTHRALGIA [None]
  - BACK PAIN [None]
  - CHEST PAIN [None]
  - HEADACHE [None]
  - INFUSION RELATED REACTION [None]
  - LIVER DISORDER [None]
  - PYREXIA [None]
